FAERS Safety Report 10423625 (Version 1)
Quarter: 2014Q3

REPORT INFORMATION
  Report Type: Spontaneous
  Country: US (occurrence: US)
  Receive Date: 20140902
  Receipt Date: 20140902
  Transmission Date: 20150326
  Serious: Yes (Other)
  Sender: FDA-Public Use
  Company Number: US-DYAX CORP.-2014DX000162

PATIENT
  Age: 37 Year
  Sex: Female
  Weight: 140.74 kg

DRUGS (7)
  1. KALBITOR [Suspect]
     Active Substance: ECALLANTIDE
     Route: 058
     Dates: start: 20140818, end: 20140818
  2. PEPCID [Concomitant]
     Active Substance: FAMOTIDINE
     Indication: PREMEDICATION
     Route: 065
  3. ZOFRAN [Concomitant]
     Active Substance: ONDANSETRON HYDROCHLORIDE
     Indication: PREMEDICATION
     Route: 065
  4. PHENERGAN [Concomitant]
     Active Substance: PROMETHAZINE HYDROCHLORIDE
     Indication: PREMEDICATION
     Route: 065
  5. KALBITOR [Suspect]
     Active Substance: ECALLANTIDE
     Route: 058
     Dates: start: 201309
  6. BENADRYL [Concomitant]
     Active Substance: DIPHENHYDRAMINE HYDROCHLORIDE
     Indication: PREMEDICATION
     Route: 065
  7. KALBITOR [Suspect]
     Active Substance: ECALLANTIDE
     Indication: HEREDITARY ANGIOEDEMA
     Route: 058
     Dates: start: 201309, end: 201309

REACTIONS (4)
  - Off label use [Unknown]
  - Anaphylactic reaction [Recovered/Resolved]
  - Device issue [Recovered/Resolved]
  - Haemoglobin decreased [Recovered/Resolved]

NARRATIVE: CASE EVENT DATE: 201309
